FAERS Safety Report 8402393-7 (Version None)
Quarter: 2012Q2

REPORT INFORMATION
  Report Type: 
  Country: None (occurrence: None)
  Receive Date: 20120601
  Receipt Date: 20120523
  Transmission Date: 20120825
  Serious: Yes (Hospitalization)
  Sender: FDA-Public Use
  Company Number: FR-ALLERGAN-1207630US

PATIENT
  Age: 43 Year
  Sex: Male

DRUGS (3)
  1. TROSPIUM CHLORIDE [Suspect]
     Indication: NEUROGENIC BLADDER
     Dosage: 40 MG, BID
     Route: 048
     Dates: start: 20120402, end: 20120411
  2. LIORESAL [Concomitant]
     Indication: PRODUCT USED FOR UNKNOWN INDICATION
  3. DEPAKENE [Concomitant]
     Indication: PRODUCT USED FOR UNKNOWN INDICATION

REACTIONS (4)
  - HAEMATURIA [None]
  - CONSTIPATION [None]
  - MICTURITION DISORDER [None]
  - ABDOMINAL PAIN [None]
